FAERS Safety Report 6069606-0 (Version None)
Quarter: 2009Q1

REPORT INFORMATION
  Report Type: 
  Country: None (occurrence: None)
  Receive Date: 20090209
  Receipt Date: 20090202
  Transmission Date: 20090719
  Serious: Yes (Hospitalization)
  Sender: FDA-Public Use
  Company Number: US-RANBAXY-2009RR-20314

PATIENT
  Age: 17 Year
  Sex: Female

DRUGS (4)
  1. IBUPROFEN [Suspect]
     Indication: DYSMENORRHOEA
  2. LEXAPRO [Suspect]
     Indication: DEPRESSION
     Dosage: 10 MG, UNK
  3. LEXAPRO [Suspect]
     Dosage: 20 MG, UNK
  4. ALPRAZOLAM [Concomitant]
     Indication: ANXIETY
     Dosage: 0.5 MG, PRN

REACTIONS (2)
  - NEPHRITIS ALLERGIC [None]
  - RENAL FAILURE [None]
